FAERS Safety Report 23561598 (Version 1)
Quarter: 2024Q1

REPORT INFORMATION
  Report Type: Spontaneous
  Country: ZA (occurrence: ZA)
  Receive Date: 20240225
  Receipt Date: 20240225
  Transmission Date: 20240409
  Serious: Yes (Hospitalization, Other)
  Sender: FDA-Public Use
  Company Number: ZA-LUPIN PHARMACEUTICALS INC.-2024-01455

PATIENT

DRUGS (8)
  1. LOSARTAN POTASSIUM [Suspect]
     Active Substance: LOSARTAN POTASSIUM
     Indication: Hypertension
     Dosage: 100 MG, QD, 1 TABLET DAILY
     Route: 048
  2. DOXAZOSIN MESYLATE [Suspect]
     Active Substance: DOXAZOSIN MESYLATE
     Indication: Product used for unknown indication
     Dosage: 4 MG, BID. 1 TABLET TWICE A DAY
     Route: 048
  3. AMLODIPINE BESYLATE [Suspect]
     Active Substance: AMLODIPINE BESYLATE
     Indication: Hypertension
     Dosage: 10 MG, QD, 1 TABLET DAILY
     Route: 048
  4. CHOLINE\INOSITOL\VITAMINS [Suspect]
     Active Substance: CHOLINE\INOSITOL\VITAMINS
     Indication: Blood cholesterol abnormal
     Dosage: 40 MG, QD, 1 TABLET DAILY
     Route: 048
  5. ALFACALCIDOL [Suspect]
     Active Substance: ALFACALCIDOL
     Indication: Osteoporosis
     Dosage: 0.25 MCG, QD, 1 CAPSULE DAILY
     Route: 048
  6. ASPIRIN\CLOPIDOGREL BISULFATE [Suspect]
     Active Substance: ASPIRIN\CLOPIDOGREL BISULFATE
     Indication: Hypertension
     Dosage: UNK, 75/75 MG, ONE TABLET DAILY
     Route: 048
  7. PROVERA [Suspect]
     Active Substance: MEDROXYPROGESTERONE ACETATE
     Indication: Product used for unknown indication
     Dosage: 10 MG, QD, 1 TABLET DAILY
     Route: 048
  8. DILTIAZEM HYDROCHLORIDE [Suspect]
     Active Substance: DILTIAZEM HYDROCHLORIDE
     Indication: Cardiac disorder
     Dosage: 180 MG, QD, 1 CAPSULE DAILY
     Route: 048

REACTIONS (1)
  - Cerebrovascular accident [Unknown]
